FAERS Safety Report 4626308-2 (Version None)
Quarter: 2005Q2

REPORT INFORMATION
  Report Type: 
  Country: None (occurrence: None)
  Receive Date: 20050325
  Receipt Date: 20050117
  Transmission Date: 20051028
  Serious: No
  Sender: FDA-Public Use
  Company Number: USA050188523

PATIENT
  Age: 86 Year
  Sex: Female

DRUGS (3)
  1. FORTEO [Suspect]
     Indication: OSTEOPOROSIS
     Dosage: 20 UG/ ONCE DAY
     Dates: start: 20041101
  2. CALCIUM GLUCONATE [Concomitant]
  3. STOOL SOFTNER [Concomitant]

REACTIONS (8)
  - ASTHENIA [None]
  - BONE PAIN [None]
  - CONSTIPATION [None]
  - HEADACHE [None]
  - MUSCLE TIGHTNESS [None]
  - PAIN [None]
  - PAIN IN EXTREMITY [None]
  - SKIN DISCOLOURATION [None]
